FAERS Safety Report 9447809 (Version 1)
Quarter: 2013Q3

REPORT INFORMATION
  Report Type: Other
  Country: JP (occurrence: JP)
  Receive Date: 20130808
  Receipt Date: 20130808
  Transmission Date: 20140515
  Serious: Yes (Hospitalization, Other)
  Sender: FDA-Public Use
  Company Number: JP-ACTELION-A-CH2013-86819

PATIENT
  Age: 68 Year
  Sex: Female

DRUGS (2)
  1. TRACLEER [Suspect]
     Indication: PULMONARY HYPERTENSION
     Dosage: UNK
     Route: 048
     Dates: start: 200811
  2. BERAPROST [Concomitant]

REACTIONS (3)
  - Dyspnoea exertional [Recovering/Resolving]
  - Angioplasty [Recovered/Resolved]
  - Haemoptysis [Recovered/Resolved]
